FAERS Safety Report 6264534-X (Version None)
Quarter: 2009Q3

REPORT INFORMATION
  Report Type: 
  Country: None (occurrence: None)
  Receive Date: 20090710
  Receipt Date: 20090629
  Transmission Date: 20100115
  Serious: Yes (Hospitalization)
  Sender: FDA-Public Use
  Company Number: FR-ROCHE-617220

PATIENT
  Sex: Male

DRUGS (4)
  1. MYCOPHENOLATE MOFETIL [Suspect]
     Indication: RENAL TRANSPLANT
     Route: 065
     Dates: start: 20070612, end: 20081225
  2. MYCOPHENOLATE MOFETIL [Suspect]
     Route: 065
     Dates: start: 20081226, end: 20081226
  3. MYCOPHENOLATE MOFETIL [Suspect]
     Route: 065
     Dates: start: 20081227, end: 20081227
  4. BELATACEPT [Suspect]
     Indication: RENAL TRANSPLANT
     Route: 042
     Dates: start: 20080117, end: 20090323

REACTIONS (3)
  - GRAFT LOSS [None]
  - POLYOMAVIRUS-ASSOCIATED NEPHROPATHY [None]
  - RENAL FAILURE CHRONIC [None]
